FAERS Safety Report 6307612-9 (Version None)
Quarter: 2009Q3

REPORT INFORMATION
  Report Type: 
  Country: None (occurrence: None)
  Receive Date: 20090811
  Receipt Date: 20090731
  Transmission Date: 20100115
  Serious: Yes (Hospitalization)
  Sender: FDA-Public Use
  Company Number: GXKR2009US08798

PATIENT
  Age: 41 Year
  Sex: Male

DRUGS (5)
  1. TRIAMCINOLONE [Suspect]
     Indication: BACK PAIN
     Dosage: TWO TRANSFORAMINAL EPIDURAL INJECTIONS OF 80 MG, INJECTION NOS
     Route: 042
  2. RITONAVIR [Suspect]
     Indication: HIV INFECTION
     Dosage: 100 MG
  3. EMTRICITABINE (EMTRICITABINE) [Concomitant]
  4. TENOFOVIR DISOPROXIL FUMARATE [Concomitant]
  5. ATAZANAVIR SULFATE [Concomitant]

REACTIONS (9)
  - ADRENAL SUPPRESSION [None]
  - ARTHRALGIA [None]
  - BLOOD PRESSURE SYSTOLIC INCREASED [None]
  - CONTUSION [None]
  - CUSHINGOID [None]
  - DERMATITIS ACNEIFORM [None]
  - DRUG INTERACTION [None]
  - RASH PRURITIC [None]
  - WEIGHT INCREASED [None]
